FAERS Safety Report 6334523-5 (Version None)
Quarter: 2009Q3

REPORT INFORMATION
  Report Type: 
  Country: None (occurrence: None)
  Receive Date: 20090831
  Receipt Date: 20090729
  Transmission Date: 20100115
  Serious: No
  Sender: FDA-Public Use
  Company Number: US-BAYER-200925638NA

PATIENT
  Sex: Female

DRUGS (1)
  1. YAZ [Suspect]
     Indication: MENSTRUATION IRREGULAR
     Route: 048
     Dates: start: 20090630

REACTIONS (4)
  - ABDOMINAL DISCOMFORT [None]
  - HYPOMENORRHOEA [None]
  - MEDICATION ERROR [None]
  - NAUSEA [None]
